FAERS Safety Report 7495246-2 (Version None)
Quarter: 2011Q2

REPORT INFORMATION
  Report Type: 
  Country: None (occurrence: None)
  Receive Date: 20110522
  Receipt Date: 20110509
  Transmission Date: 20111010
  Serious: No
  Sender: FDA-Public Use
  Company Number: US-ELI_LILLY_AND_COMPANY-US201103003529

PATIENT
  Sex: Female

DRUGS (15)
  1. ESTRADIOL [Concomitant]
  2. ASPIRIN [Concomitant]
  3. VITAMIN D [Concomitant]
  4. EFFEXOR XR [Concomitant]
  5. RESTASIS [Concomitant]
  6. LIPITOR [Concomitant]
  7. SPIRIVA [Concomitant]
  8. NEURONTIN [Concomitant]
  9. FORTEO [Suspect]
     Indication: MULTIPLE FRACTURES
     Dosage: 20 UG, DAILY (1/D)
     Dates: start: 20101201
  10. BACLOFEN [Concomitant]
     Indication: MUSCLE SPASMS
  11. CALCIUM CARBONATE [Concomitant]
  12. TRICOR [Concomitant]
  13. NORCO [Concomitant]
  14. NEXIUM [Concomitant]
  15. BOTOX [Concomitant]

REACTIONS (4)
  - NAUSEA [None]
  - INTENTIONAL DRUG MISUSE [None]
  - MUSCLE SPASMS [None]
  - BLOOD POTASSIUM INCREASED [None]
